FAERS Safety Report 9094536 (Version 1)
Quarter: 2013Q1

REPORT INFORMATION
  Report Type: Report from Study
  Country: KR (occurrence: KR)
  Receive Date: 20130220
  Receipt Date: 20130220
  Transmission Date: 20140127
  Serious: Yes (Hospitalization)
  Sender: FDA-Public Use
  Company Number: KR-009507513-1207KOR000531

PATIENT
  Age: 3 Year
  Sex: Male
  Weight: 15 kg

DRUGS (49)
  1. APREPITANT [Suspect]
     Indication: PROPHYLAXIS OF NAUSEA AND VOMITING
     Dosage: 1.8 ML,QD,CYCLE 1
     Route: 048
     Dates: start: 20120417, end: 20120419
  2. APREPITANT [Suspect]
     Dosage: 1.8 ML, QD CYCLE 2
     Route: 048
     Dates: start: 20120509, end: 20120509
  3. APREPITANT [Suspect]
     Dosage: 1.2 ML, QD CYCLE 2
     Route: 048
     Dates: start: 20120510, end: 20120511
  4. APREPITANT [Suspect]
     Dosage: 1.572 ML, QD CYCLE 3
     Route: 048
     Dates: start: 20120621, end: 20120621
  5. APREPITANT [Suspect]
     Dosage: 1.048 ML, QD CYCLE 3
     Route: 048
     Dates: start: 20120622, end: 20120623
  6. ONDANSETRON [Suspect]
     Indication: PROPHYLAXIS OF NAUSEA AND VOMITING
     Dosage: 4 MG, QPM CYCLE 2
     Route: 042
     Dates: start: 20120509, end: 20120513
  7. ONDANSETRON [Suspect]
     Dosage: 4 MG, QPM CYCLE 3
     Route: 042
     Dates: start: 20120621, end: 20120625
  8. ONDANSETRON [Suspect]
     Dosage: 4 MG, QD CYCLE 1
     Route: 042
     Dates: start: 20120417, end: 20120421
  9. VINCRISTINE SULFATE [Suspect]
     Indication: CHEMOTHERAPY
     Dosage: 0.93 MG, ONCE
     Route: 042
     Dates: start: 20120523, end: 20120523
  10. VINCRISTINE SULFATE [Suspect]
     Dosage: 1.4 MG, QD
     Route: 042
     Dates: start: 20120621, end: 20120621
  11. VINCRISTINE SULFATE [Suspect]
     Dosage: 0.93 MG, ONCE
     Route: 042
     Dates: start: 20120514, end: 20120514
  12. VINCRISTINE SULFATE [Suspect]
     Dosage: 0.9 MG, ONCE
     Route: 042
     Dates: start: 20120614, end: 20120614
  13. VINCRISTINE SULFATE [Suspect]
     Dosage: 0.93 MG, ONCE
     Route: 042
     Dates: start: 20120509, end: 20120509
  14. DACTINOMYCIN [Suspect]
     Indication: CHEMOTHERAPY
     Dosage: 0.2 MG, QD
     Route: 042
     Dates: start: 20120509, end: 20120513
  15. DACTINOMYCIN [Suspect]
     Indication: NEPHROBLASTOMA
     Dosage: 0.2 MG, ONCE
     Route: 042
     Dates: start: 20120621, end: 20120621
  16. NYSTATIN [Concomitant]
     Indication: PROPHYLAXIS
     Dosage: 2 ML, TID
     Route: 048
     Dates: start: 20120502, end: 20120519
  17. PENIRAMIN [Concomitant]
     Indication: PROPHYLAXIS
     Dosage: 1 MG, TID
     Route: 048
     Dates: start: 20120504, end: 20120510
  18. PENIRAMIN [Concomitant]
     Dosage: 1.2 MG, ONCE
     Route: 042
     Dates: start: 20120614, end: 20120614
  19. MAGNESIUM OXIDE [Concomitant]
     Indication: CONSTIPATION PROPHYLAXIS
     Dosage: 100 MG, TID
     Route: 048
     Dates: start: 20120504, end: 20120510
  20. MAGNESIUM OXIDE [Concomitant]
     Dosage: 100 MG, QD
     Route: 048
     Dates: start: 20120511, end: 20120519
  21. OMNICEF [Concomitant]
     Indication: INFECTION PROPHYLAXIS
     Dosage: 0.5 MG, TID
     Route: 048
     Dates: start: 20120505, end: 20120510
  22. OMNICEF [Concomitant]
     Dosage: 0.5 MG, TID
     Route: 048
     Dates: start: 20120614, end: 20120621
  23. TAGAMET [Concomitant]
     Indication: PROPHYLAXIS
     Dosage: 100 MG, TID
     Route: 048
     Dates: start: 20120509, end: 20120514
  24. TAGAMET [Concomitant]
     Indication: GASTRITIS PROPHYLAXIS
     Dosage: 100 MG, TID
     Route: 048
     Dates: start: 20120621, end: 20120626
  25. SEPTRIN [Concomitant]
     Indication: ANTIFUNGAL PROPHYLAXIS
     Dosage: 0.6 DF, BID
     Route: 048
     Dates: start: 20120511, end: 20120513
  26. SEPTRIN [Concomitant]
     Dosage: 0.6 DF, BID
     Route: 048
     Dates: start: 20120518, end: 20120520
  27. SEPTRIN [Concomitant]
     Dosage: 0.6 UNK, UNK
     Route: 048
     Dates: start: 20120625, end: 20120627
  28. SEPTRIN [Concomitant]
     Dosage: 0.6 DF, TID
     Route: 048
     Dates: start: 20120615, end: 20120617
  29. SEPTRIN [Concomitant]
     Dosage: 0.6 DF, BID
     Route: 048
     Dates: start: 20120622, end: 20120624
  30. DEXAMETHASONE [Concomitant]
     Indication: PROPHYLAXIS
     Dosage: 1.5 MG, QD
     Route: 042
     Dates: start: 20120514, end: 20120514
  31. FORMOTEROL FUMARATE [Concomitant]
     Indication: COUGH
     Dosage: 12 MG, TID
     Route: 048
     Dates: start: 20120505, end: 20120512
  32. ACETAMINOPHEN [Concomitant]
     Indication: PYREXIA
     Dosage: 300 MG, TID
     Dates: start: 20120511, end: 20120519
  33. DEXAMETHASONE [Concomitant]
     Dosage: 50 ML, UNK
     Dates: start: 20120417, end: 20120421
  34. ONDANSETRON [Concomitant]
     Indication: PROPHYLAXIS OF NAUSEA AND VOMITING
     Dosage: 4 MG, UNK
     Route: 042
     Dates: start: 20120417, end: 20120421
  35. ONDANSETRON [Concomitant]
     Dosage: 4 MG, UNK
     Route: 042
     Dates: start: 20120509, end: 20120513
  36. ONDANSETRON [Concomitant]
     Dosage: 4 MG, UNK
     Route: 042
     Dates: start: 20120621, end: 20120625
  37. ONDANSETRON [Concomitant]
     Indication: PROPHYLAXIS OF NAUSEA AND VOMITING
     Dosage: 4 MG, QD
     Dates: start: 20120514, end: 20120614
  38. ONDANSETRON [Concomitant]
     Dosage: 4 MG, QD
     Dates: start: 20120625
  39. ISEPAMICIN SULFATE [Concomitant]
     Indication: INFECTION
     Dosage: 120 MG, BID
     Dates: start: 20120525, end: 20120528
  40. ACETAMINOPHEN [Concomitant]
     Indication: PYREXIA
     Dosage: 280 MG, QD
     Route: 048
     Dates: start: 20120525, end: 20120528
  41. ACETAMINOPHEN [Concomitant]
     Dosage: 280 MG, TID
     Route: 048
     Dates: start: 20120621, end: 20120625
  42. CEFPIRAMIDE SODIUM [Concomitant]
     Indication: INFECTION
     Dosage: 0.40 G, TID
     Route: 042
     Dates: start: 20120525, end: 20120602
  43. MAGNESIUM OXIDE [Concomitant]
     Indication: CONSTIPATION PROPHYLAXIS
     Dosage: 125 MG, TID
     Dates: start: 20120525, end: 20120530
  44. MAGNESIUM OXIDE [Concomitant]
     Dosage: 125 MG, TID
     Dates: start: 20120621
  45. MOSAPRIDE CITRATE [Concomitant]
     Indication: GASTROINTESTINAL DISORDER
     Dosage: 2.5 MG, TID
     Route: 048
     Dates: start: 20120528, end: 20120604
  46. NYSTATIN [Concomitant]
     Indication: INFECTION PROPHYLAXIS
     Dosage: 2 ML, TID
     Route: 048
     Dates: start: 20120529, end: 20120624
  47. ONDANSETRON [Concomitant]
     Dosage: 4 MG, QD
     Dates: start: 20120614
  48. FUROSEMIDE [Concomitant]
     Dosage: 5 MG, QD
     Dates: start: 20120614, end: 20120614
  49. CHLORPHENIRAMINE MALEATE [Concomitant]
     Dosage: UNK
     Dates: start: 20120614

REACTIONS (2)
  - Decreased appetite [Recovered/Resolved]
  - Pyrexia [Recovered/Resolved]
